FAERS Safety Report 26083070 (Version 1)
Quarter: 2025Q4

REPORT INFORMATION
  Report Type: Spontaneous
  Country: US (occurrence: None)
  Receive Date: 20251124
  Receipt Date: 20251124
  Transmission Date: 20260117
  Serious: Yes (unspecified)
  Sender: FDA-CTU
  Company Number: None

PATIENT
  Age: 73 Year
  Sex: Female
  Weight: 94.05 kg

DRUGS (10)
  1. ROSUVASTATIN [Suspect]
     Active Substance: ROSUVASTATIN
     Indication: Blood cholesterol increased
     Dosage: OTHER QUANTITY : 1 TABLET(S);?FREQUENCY : AT BEDTIME;?
     Route: 048
     Dates: start: 20250828, end: 20251104
  2. PAXLOVID [Suspect]
     Active Substance: NIRMATRELVIR\RITONAVIR
  3. Routine ASV CPAP [Concomitant]
  4. ROPINIROLE [Concomitant]
     Active Substance: ROPINIROLE
  5. TYLENOL [Concomitant]
     Active Substance: ACETAMINOPHEN
  6. ZOLPIDEM [Concomitant]
     Active Substance: ZOLPIDEM TARTRATE
  7. ADVIL [Concomitant]
     Active Substance: IBUPROFEN
  8. TUMS [Concomitant]
     Active Substance: CALCIUM CARBONATE
  9. CYCLOBENZAPRINE [Concomitant]
     Active Substance: CYCLOBENZAPRINE
  10. VITAMIN D NOS [Concomitant]
     Active Substance: CHOLECALCIFEROL\ERGOCALCIFEROL

REACTIONS (7)
  - Respiratory disorder [None]
  - Mucosal dryness [None]
  - Cough [None]
  - Sleep disorder [None]
  - Hypersensitivity [None]
  - Asthma [None]
  - Therapy cessation [None]

NARRATIVE: CASE EVENT DATE: 20251103
